FAERS Safety Report 14944277 (Version 3)
Quarter: 2018Q2

REPORT INFORMATION
  Report Type: Spontaneous
  Country: DE (occurrence: DE)
  Receive Date: 20180528
  Receipt Date: 20180611
  Transmission Date: 20180711
  Serious: Yes (Other)
  Sender: FDA-Public Use
  Company Number: DE-MYLANLABS-2018M1034909

PATIENT
  Sex: Male

DRUGS (18)
  1. L-THYROXIN                         /00068002/ [Interacting]
     Active Substance: LEVOTHYROXINE SODIUM
     Dosage: 50 G, QD
  2. BISOPROLOL [Interacting]
     Active Substance: BISOPROLOL
     Indication: PRODUCT USED FOR UNKNOWN INDICATION
     Dosage: UNK UNK, QD (ONE TABLET DAILY IN THE MORNING)
     Route: 065
  3. MIFLONIDE [Interacting]
     Active Substance: BUDESONIDE
     Indication: PRODUCT USED FOR UNKNOWN INDICATION
     Dosage: 400 UG, AS NEEDED; AS REQUIRED
     Route: 065
  4. CANDESARTAN/HYDROCHLOROTHIAZIDE [Suspect]
     Active Substance: CANDESARTAN CILEXETIL\HYDROCHLOROTHIAZIDE
     Indication: PRODUCT USED FOR UNKNOWN INDICATION
     Dosage: UNK UNK, QD (16 MG/12.5 MG, ONE TABLET DAILY AT NIGHT)
     Route: 065
  5. SIMVASTATIN. [Interacting]
     Active Substance: SIMVASTATIN
     Indication: PRODUCT USED FOR UNKNOWN INDICATION
     Dosage: 20 MG, QD (ONE TABLET DAILY IN THE MORNING)
     Route: 065
  6. PANTOPRAZOLE [Interacting]
     Active Substance: PANTOPRAZOLE
     Indication: PRODUCT USED FOR UNKNOWN INDICATION
     Dosage: 40 MG, BID (ONE TABLET IN THE MORNING AND ONE TABLET AT NIGHT FOR 2 WEEKS)
     Route: 065
  7. FORADIL [Interacting]
     Active Substance: FORMOTEROL FUMARATE
     Indication: PRODUCT USED FOR UNKNOWN INDICATION
     Dosage: 12 UG, AS NEEDED; AS REQUIRED
     Route: 065
  8. SPIRONOLACTON HEXAL [Interacting]
     Active Substance: SPIRONOLACTONE
     Indication: PRODUCT USED FOR UNKNOWN INDICATION
     Dosage: 6 MG, QD
     Route: 065
  9. SPIRIVA [Interacting]
     Active Substance: TIOTROPIUM BROMIDE MONOHYDRATE
     Indication: PRODUCT USED FOR UNKNOWN INDICATION
     Dosage: AS NEEDED; AS REQUIRED
     Route: 065
  10. PANTOPRAZOLE [Interacting]
     Active Substance: PANTOPRAZOLE
     Dosage: 40 UNK, UNK (ONE TABLET IN THE MORNING)
     Route: 065
  11. ACETYLSALICYLIC ACID [Suspect]
     Active Substance: ASPIRIN
     Indication: PRODUCT USED FOR UNKNOWN INDICATION
     Dosage: 1 DF, QD
  12. FORADIL [Interacting]
     Active Substance: FORMOTEROL FUMARATE
     Dosage: 12 G, PRN
  13. L-THYROXIN                         /00068002/ [Interacting]
     Active Substance: LEVOTHYROXINE SODIUM
     Indication: PRODUCT USED FOR UNKNOWN INDICATION
     Dosage: 50 UG, QD (ONE TABLET DAILY IN THE MORNING)
     Route: 065
  14. SPIRIVA [Interacting]
     Active Substance: TIOTROPIUM BROMIDE MONOHYDRATE
     Dosage: 2.5 G, UNK
  15. SPIRONOLACTON HEXAL [Interacting]
     Active Substance: SPIRONOLACTONE
     Dosage: 50 MG, QD (ONE TABLET DAILY IN THE MORNING)
     Route: 065
  16. ACETYLSALICYLIC ACID [Interacting]
     Active Substance: ASPIRIN
     Indication: PRODUCT USED FOR UNKNOWN INDICATION
     Dosage: UNK UNK, QD (ONE TABLET DAILY IN THE MORNING)
     Route: 065
  17. GLIMEPIRIDE. [Interacting]
     Active Substance: GLIMEPIRIDE
     Indication: PRODUCT USED FOR UNKNOWN INDICATION
     Dosage: 6 MG, QD (ONE TABLET DAILY IN THE MORNING)
     Route: 065
  18. MIFLONIDE [Interacting]
     Active Substance: BUDESONIDE
     Dosage: 400 G, PRN

REACTIONS (2)
  - Drug interaction [Unknown]
  - Blood glucose increased [Unknown]
